FAERS Safety Report 16268778 (Version 1)
Quarter: 2019Q2

REPORT INFORMATION
  Report Type: Spontaneous
  Country: BR (occurrence: BR)
  Receive Date: 20190503
  Receipt Date: 20190503
  Transmission Date: 20190711
  Serious: Yes (Other)
  Sender: FDA-Public Use
  Company Number: BR-009507513-1905BRA000723

PATIENT
  Age: 77 Year
  Sex: Male

DRUGS (5)
  1. FLORINEFE [Concomitant]
     Indication: AUTONOMIC NERVOUS SYSTEM IMBALANCE
  2. PREDNISONE. [Suspect]
     Active Substance: PREDNISONE
     Indication: AUTONOMIC NERVOUS SYSTEM IMBALANCE
  3. FLORINEFE [Concomitant]
     Indication: ADRENAL INSUFFICIENCY
     Dosage: UNK
     Dates: start: 201810
  4. PREDNISONE. [Suspect]
     Active Substance: PREDNISONE
     Indication: ADRENAL INSUFFICIENCY
     Dosage: UNK
     Dates: start: 201810
  5. KEYTRUDA [Suspect]
     Active Substance: PEMBROLIZUMAB
     Indication: TRANSITIONAL CELL CARCINOMA
     Dosage: UNK
     Dates: start: 201805

REACTIONS (1)
  - Parkinson^s disease [Unknown]
